FAERS Safety Report 18554164 (Version 2)
Quarter: 2020Q4

REPORT INFORMATION
  Report Type: Report from Study
  Country: None (occurrence: US)
  Receive Date: 20201127
  Receipt Date: 20201218
  Transmission Date: 20210114
  Serious: Yes (Death, Hospitalization, Other)
  Sender: FDA-Public Use
  Company Number: US-ABBVIE-20K-163-3544889-00

PATIENT
  Age: 60 Year
  Sex: Female
  Weight: 47.67 kg

DRUGS (4)
  1. ESTRADIOL. [Concomitant]
     Active Substance: ESTRADIOL
     Indication: PRODUCT USED FOR UNKNOWN INDICATION
  2. TAXOL [Concomitant]
     Active Substance: PACLITAXEL
     Indication: OESOPHAGEAL CARCINOMA
  3. PARAPLATIN [Concomitant]
     Active Substance: CARBOPLATIN
     Indication: OESOPHAGEAL CARCINOMA
  4. HUMIRA [Suspect]
     Active Substance: ADALIMUMAB
     Indication: PSORIASIS
     Route: 058
     Dates: start: 2017, end: 2020

REACTIONS (2)
  - COVID-19 [Unknown]
  - Oesophageal carcinoma [Fatal]

NARRATIVE: CASE EVENT DATE: 20200505
